FAERS Safety Report 16287987 (Version 2)
Quarter: 2019Q2

REPORT INFORMATION
  Report Type: Spontaneous
  Country: CA (occurrence: CA)
  Receive Date: 20190508
  Receipt Date: 20190625
  Transmission Date: 20190711
  Serious: Yes (Death)
  Sender: FDA-Public Use
  Company Number: CA-PFIZER INC-2018416262

PATIENT
  Age: 15 Year
  Sex: Male
  Weight: 89.2 kg

DRUGS (3)
  1. INOTUZUMAB OZOGAMICIN [Suspect]
     Active Substance: INOTUZUMAB OZOGAMICIN
     Indication: ACUTE LYMPHOCYTIC LEUKAEMIA
     Dosage: 0.8 MG/M2, SINGLE, DAY 1
     Route: 042
     Dates: start: 2018, end: 2018
  2. INOTUZUMAB OZOGAMICIN [Suspect]
     Active Substance: INOTUZUMAB OZOGAMICIN
     Dosage: 0.5 MG/M2, SINGLE, DAY 15
     Route: 042
     Dates: start: 2018, end: 2018
  3. INOTUZUMAB OZOGAMICIN [Suspect]
     Active Substance: INOTUZUMAB OZOGAMICIN
     Dosage: 0.5 MG/M2, SINGLE, DAY 8
     Route: 042
     Dates: start: 2018, end: 2018

REACTIONS (3)
  - Product use issue [Unknown]
  - Neoplasm recurrence [Unknown]
  - Death [Fatal]

NARRATIVE: CASE EVENT DATE: 2018
